FAERS Safety Report 4446208-0 (Version None)
Quarter: 2004Q3

REPORT INFORMATION
  Report Type: 
  Country: None (occurrence: None)
  Receive Date: 20040907
  Receipt Date: 20040831
  Transmission Date: 20050211
  Serious: Yes (Hospitalization)
  Sender: FDA-Public Use
  Company Number: OMPQ-PR-0408S-1142

PATIENT
  Age: 41 Year
  Sex: Female

DRUGS (1)
  1. OMNIPAQUE 180 [Suspect]
     Indication: INTERVERTEBRAL DISC DISORDER
     Dosage: 10 ML, SINGLE DOSE, I.T.
     Route: 038
     Dates: start: 20040827, end: 20040827

REACTIONS (6)
  - CSF TEST ABNORMAL [None]
  - HEADACHE [None]
  - NUCHAL RIGIDITY [None]
  - PYREXIA [None]
  - STREPTOCOCCAL SEPSIS [None]
  - WHITE BLOOD CELL COUNT INCREASED [None]
